FAERS Safety Report 4965413-8 (Version None)
Quarter: 2006Q2

REPORT INFORMATION
  Report Type: 
  Country: None (occurrence: None)
  Receive Date: 20060406
  Receipt Date: 20060329
  Transmission Date: 20061013
  Serious: Yes (Hospitalization)
  Sender: FDA-Public Use
  Company Number: AU-MERCK-0603AUS00229

PATIENT
  Age: 66 Year
  Sex: Male

DRUGS (8)
  1. ZOCOR [Suspect]
     Route: 048
     Dates: end: 20031215
  2. ERYTHROMYCIN [Suspect]
     Indication: PERTUSSIS
     Route: 065
     Dates: start: 20031104, end: 20031212
  3. WARFARIN SODIUM [Suspect]
     Route: 048
     Dates: end: 20031215
  4. METOPROLOL [Concomitant]
     Route: 065
  5. ASPIRIN [Concomitant]
     Route: 065
  6. CHOLESTYRAMINE RESIN [Concomitant]
     Route: 065
  7. ACETAMINOPHEN AND CODEINE PHOSPHATE [Concomitant]
     Route: 065
  8. METOCLOPRAMIDE HYDROCHLORIDE [Concomitant]
     Route: 065

REACTIONS (8)
  - ARTHRALGIA [None]
  - ASTHENIA [None]
  - DRUG INTERACTION [None]
  - HEADACHE [None]
  - MYALGIA [None]
  - OLIGURIA [None]
  - PYREXIA [None]
  - RHABDOMYOLYSIS [None]
